FAERS Safety Report 5922179-2 (Version None)
Quarter: 2008Q4

REPORT INFORMATION
  Report Type: 
  Country: None (occurrence: None)
  Receive Date: 20081014
  Receipt Date: 20080930
  Transmission Date: 20090506
  Serious: Yes (Hospitalization)
  Sender: FDA-Public Use
  Company Number: 2008BI025977

PATIENT
  Age: 33 Year
  Sex: Male

DRUGS (6)
  1. TYSABRI [Suspect]
     Indication: MULTIPLE SCLEROSIS
     Dosage: 300 MG; QM; IV, 300 MG; QM; IV
     Route: 042
     Dates: start: 20050201, end: 20050201
  2. TYSABRI [Suspect]
     Indication: MULTIPLE SCLEROSIS
     Dosage: 300 MG; QM; IV, 300 MG; QM; IV
     Route: 042
     Dates: start: 20080630
  3. AVONEX [Concomitant]
  4. DITROPAN [Concomitant]
  5. ADVIL [Concomitant]
  6. PAXIL [Concomitant]

REACTIONS (22)
  - ABDOMINAL DISTENSION [None]
  - BODY TEMPERATURE INCREASED [None]
  - BREATH SOUNDS ABNORMAL [None]
  - CULTURE POSITIVE [None]
  - CULTURE WOUND POSITIVE [None]
  - DEEP VEIN THROMBOSIS [None]
  - DEHYDRATION [None]
  - DIARRHOEA [None]
  - ELECTROCARDIOGRAM T WAVE ABNORMAL [None]
  - ENTEROCOCCAL INFECTION [None]
  - HAEMOGLOBIN DECREASED [None]
  - INCISION SITE COMPLICATION [None]
  - INCISIONAL DRAINAGE [None]
  - LEUKOCYTOSIS [None]
  - PROCEDURAL PAIN [None]
  - PSEUDOMONAS INFECTION [None]
  - PULMONARY EMBOLISM [None]
  - RENAL CELL CARCINOMA [None]
  - SECRETION DISCHARGE [None]
  - SMALL INTESTINAL OBSTRUCTION [None]
  - TACHYCARDIA [None]
  - WOUND DEHISCENCE [None]
